FAERS Safety Report 19780730 (Version 2)
Quarter: 2021Q3

REPORT INFORMATION
  Report Type: Spontaneous
  Country: US (occurrence: US)
  Receive Date: 20210903
  Receipt Date: 20210921
  Transmission Date: 20211014
  Serious: No
  Sender: FDA-Public Use
  Company Number: US-QED THERAPEUTICS-2117973

PATIENT
  Age: 89 Year
  Sex: Female

DRUGS (1)
  1. TRUSELTIQ [Suspect]
     Active Substance: INFIGRATINIB
     Indication: CHOLANGIOCARCINOMA
     Route: 048
     Dates: start: 20210724

REACTIONS (3)
  - Prescribed underdose [Unknown]
  - Wrong technique in product usage process [Unknown]
  - Rash pruritic [Recovered/Resolved with Sequelae]

NARRATIVE: CASE EVENT DATE: 20210724
